FAERS Safety Report 21576381 (Version 1)
Quarter: 2022Q4

REPORT INFORMATION
  Report Type: Spontaneous
  Country: US (occurrence: US)
  Receive Date: 20221110
  Receipt Date: 20221110
  Transmission Date: 20230113
  Serious: No
  Sender: FDA-Public Use
  Company Number: US-GLENMARK PHARMACEUTICALS-2022GMK074809

PATIENT

DRUGS (1)
  1. OMEPRAZOLE [Suspect]
     Active Substance: OMEPRAZOLE
     Indication: Ulcer
     Dosage: 1 DOSAGE FORM, BID, (TWICE DAILY 30 MIN BEFORE BREAKFAST AND DINNER)
     Route: 048

REACTIONS (4)
  - Inappropriate schedule of product administration [Unknown]
  - Treatment noncompliance [Unknown]
  - Tremor [Recovering/Resolving]
  - Muscle spasms [Recovering/Resolving]
